FAERS Safety Report 21068168 (Version 2)
Quarter: 2022Q3

REPORT INFORMATION
  Report Type: Report from Study
  Country: BR (occurrence: BR)
  Receive Date: 20220712
  Receipt Date: 20220726
  Transmission Date: 20221027
  Serious: Yes (Other)
  Sender: FDA-Public Use
  Company Number: BR-SA-SAC20220617001974

PATIENT
  Age: 11 Year
  Sex: Female
  Weight: 35 kg

DRUGS (1)
  1. ALGLUCOSIDASE ALFA [Suspect]
     Active Substance: ALGLUCOSIDASE ALFA
     Indication: Glycogen storage disease type II
     Dosage: UNK UNK, QOW
     Route: 042

REACTIONS (5)
  - Laryngeal oedema [Recovered/Resolved]
  - Lip pruritus [Recovered/Resolved]
  - Back pain [Recovered/Resolved]
  - Mouth swelling [Recovered/Resolved]
  - Product preparation issue [Unknown]

NARRATIVE: CASE EVENT DATE: 20170101
